FAERS Safety Report 6857919-1 (Version None)
Quarter: 2010Q3

REPORT INFORMATION
  Report Type: 
  Country: None (occurrence: None)
  Receive Date: 20100714
  Receipt Date: 20100705
  Transmission Date: 20110219
  Serious: Yes (Other)
  Sender: FDA-Public Use
  Company Number: 2010JP003918

PATIENT
  Age: 46 Year
  Sex: Female

DRUGS (5)
  1. PROGRAF [Suspect]
     Indication: RENAL TRANSPLANT
     Dosage: 1.8 MG, IV DRIP
     Route: 041
  2. BASILIXIMAB (BASILIXIMAB) [Concomitant]
  3. METHYLPREDNISOLONE [Concomitant]
  4. MYCOPHENOLATE MOFETIL [Concomitant]
  5. SOL MEDROL (METHYLPREDNISOLONE, SUCCINATE SODIUM) [Concomitant]

REACTIONS (1)
  - CYTOMEGALOVIRUS TEST POSITIVE [None]
